FAERS Safety Report 11117691 (Version 1)
Quarter: 2015Q2

REPORT INFORMATION
  Report Type: Spontaneous
  Country: US (occurrence: US)
  Receive Date: 20150518
  Receipt Date: 20150518
  Transmission Date: 20150821
  Serious: No
  Sender: FDA-Public Use
  Company Number: US-SUN PHARMACEUTICAL INDUSTRIES LTD-2014SUN02192

PATIENT

DRUGS (3)
  1. QUINAPRIL [Concomitant]
     Active Substance: QUINAPRIL\QUINAPRIL HYDROCHLORIDE
  2. TOPIRAMATE TABS 100MG [Suspect]
     Active Substance: TOPIRAMATE
     Indication: MIGRAINE PROPHYLAXIS
     Dosage: 1 DF, BID
     Route: 048
  3. TOPIRAMATE TABS 100MG [Suspect]
     Active Substance: TOPIRAMATE
     Dosage: 1 DF, BID
     Route: 048
     Dates: start: 2012, end: 2014

REACTIONS (3)
  - Drug ineffective for unapproved indication [Unknown]
  - Migraine [Recovering/Resolving]
  - Off label use [Unknown]

NARRATIVE: CASE EVENT DATE: 2012
